FAERS Safety Report 8087219-6 (Version None)
Quarter: 2012Q1

REPORT INFORMATION
  Report Type: 
  Country: None (occurrence: None)
  Receive Date: 20120128
  Receipt Date: 20110513
  Transmission Date: 20120608
  Serious: No
  Sender: FDA-Public Use
  Company Number: US-ABBOTT-11P-163-0725799-00

PATIENT
  Age: 29 Year
  Sex: Female

DRUGS (2)
  1. UNKNOWN MEDICATIONS [Concomitant]
     Indication: PRODUCT USED FOR UNKNOWN INDICATION
  2. HUMIRA [Suspect]
     Indication: PSORIASIS
     Dates: start: 20100401

REACTIONS (6)
  - NASAL CONGESTION [None]
  - MALAISE [None]
  - HYPERSENSITIVITY [None]
  - BODY TEMPERATURE INCREASED [None]
  - INFLUENZA [None]
  - DYSPNOEA [None]
